FAERS Safety Report 9226084 (Version 1)
Quarter: 2013Q2

REPORT INFORMATION
  Report Type: Spontaneous
  Country: US (occurrence: US)
  Receive Date: 20130411
  Receipt Date: 20130411
  Transmission Date: 20140414
  Serious: No
  Sender: FDA-Public Use
  Company Number: US-009507513-1304USA004034

PATIENT
  Sex: Female

DRUGS (5)
  1. CLARITIN [Suspect]
     Indication: MYCOTIC ALLERGY
     Dosage: UNK, QD
     Route: 048
  2. CLARITIN [Suspect]
     Indication: SEASONAL ALLERGY
  3. CLARITIN [Suspect]
     Indication: HOUSE DUST ALLERGY
  4. DIOVAN [Concomitant]
     Indication: HYPERTENSION
  5. ATENOLOL [Concomitant]
     Indication: HYPERTENSION

REACTIONS (1)
  - Drug ineffective [Unknown]
